FAERS Safety Report 5758472-6 (Version None)
Quarter: 2008Q2

REPORT INFORMATION
  Report Type: 
  Country: None (occurrence: None)
  Receive Date: 20080604
  Receipt Date: 20080521
  Transmission Date: 20081010
  Serious: Yes (Hospitalization, Congenital Anomaly)
  Sender: FDA-Public Use
  Company Number: A0678481A

PATIENT
  Sex: Female
  Weight: 3.1 kg

DRUGS (4)
  1. PAXIL CR [Suspect]
     Indication: DEPRESSION
     Dates: start: 20030401, end: 20040801
  2. PAXIL [Suspect]
     Indication: DEPRESSION
  3. VICODIN [Concomitant]
     Dosage: 1TAB THREE TIMES PER DAY
     Dates: start: 20020101, end: 20040101
  4. VITAMIN TAB [Concomitant]

REACTIONS (8)
  - APHASIA [None]
  - ATRIAL SEPTAL DEFECT [None]
  - CARDIAC FAILURE CONGESTIVE [None]
  - DRUG EXPOSURE DURING PREGNANCY [None]
  - PERSISTENT FOETAL CIRCULATION [None]
  - TRISOMY 21 [None]
  - VASCULAR ANOMALY [None]
  - VENTRICULAR SEPTAL DEFECT [None]
